FAERS Safety Report 21541968 (Version 1)
Quarter: 2022Q4

REPORT INFORMATION
  Report Type: Report from Study
  Country: ES (occurrence: None)
  Receive Date: 20221102
  Receipt Date: 20221102
  Transmission Date: 20230113
  Serious: Yes (Hospitalization, Other)
  Sender: FDA-Public Use
  Company Number: ES-Merck Healthcare KGaA-9360683

PATIENT
  Age: 54 Year

DRUGS (1)
  1. LEVOTHYROXINE SODIUM [Suspect]
     Active Substance: LEVOTHYROXINE SODIUM
     Indication: Product used for unknown indication

REACTIONS (4)
  - Polyneuropathy [Unknown]
  - Pyrexia [Unknown]
  - Hypothyroidism [Unknown]
  - Drug ineffective [Unknown]
